FAERS Safety Report 10211380 (Version 1)
Quarter: 2014Q2

REPORT INFORMATION
  Report Type: Spontaneous
  Country: MX (occurrence: MX)
  Receive Date: 20140602
  Receipt Date: 20140602
  Transmission Date: 20141212
  Serious: Yes (Other)
  Sender: FDA-Public Use
  Company Number: PHHY2014MX063066

PATIENT
  Sex: Female

DRUGS (1)
  1. OMNITROPE [Suspect]
     Dates: start: 201112, end: 201402

REACTIONS (1)
  - Neoplasm [Not Recovered/Not Resolved]
